FAERS Safety Report 11522201 (Version 5)
Quarter: 2016Q1

REPORT INFORMATION
  Report Type: Report from Study
  Country: IT (occurrence: IT)
  Receive Date: 20150918
  Receipt Date: 20160218
  Transmission Date: 20160525
  Serious: Yes (Other)
  Sender: FDA-Public Use
  Company Number: IT-PFIZER INC-2015304882

PATIENT
  Age: 66 Year
  Sex: Female
  Weight: 63 kg

DRUGS (7)
  1. ZOFENOPRIL [Concomitant]
     Active Substance: ZOFENOPRIL
     Indication: HYPERTENSION
     Dosage: 30 MG, DAILY
     Route: 048
     Dates: start: 20150220
  2. ACETYLSALICYLIC ACID [Concomitant]
     Active Substance: ASPIRIN
     Indication: CAROTID ARTERY STENOSIS
     Dosage: 100 MG, DAILY
     Route: 048
     Dates: start: 20090101
  3. BIMATOPROST. [Concomitant]
     Active Substance: BIMATOPROST
     Indication: OCULAR HYPERTENSION
     Dosage: 1 GTT, DAILY
     Route: 061
     Dates: start: 20150804
  4. FASLODEX [Suspect]
     Active Substance: FULVESTRANT
     Indication: BREAST CANCER METASTATIC
     Dosage: 500 MG, CYCLIC (DAY 1 AND 15 OF CYCLE, THEN DAY 1 OF EACH SUBSEQUENT 28-DAY CYCLE)
     Route: 030
     Dates: start: 20140618, end: 20150812
  5. GLIMEPIRIDE. [Concomitant]
     Active Substance: GLIMEPIRIDE
     Indication: TYPE 2 DIABETES MELLITUS
     Dosage: 2 MG, DAILY
     Route: 048
     Dates: start: 20090101
  6. PALBOCICLIB [Suspect]
     Active Substance: PALBOCICLIB
     Indication: BREAST CANCER METASTATIC
     Dosage: 125 MG, DAILY FOR 3 WEEKS, FOLLOWED BY 1 WEEK OFF
     Route: 048
     Dates: start: 20140618, end: 20150901
  7. ROSUVASTATIN [Concomitant]
     Active Substance: ROSUVASTATIN
     Indication: HYPERCHOLESTEROLAEMIA
     Dosage: UNK, DAILY
     Route: 048
     Dates: start: 20050101

REACTIONS (1)
  - Carotid artery stenosis [Recovered/Resolved]

NARRATIVE: CASE EVENT DATE: 20150901
